FAERS Safety Report 9004964 (Version 2)
Quarter: 2013Q1

REPORT INFORMATION
  Report Type: Spontaneous
  Country: US (occurrence: US)
  Receive Date: 20130109
  Receipt Date: 20130227
  Transmission Date: 20140127
  Serious: Yes (Other)
  Sender: FDA-Public Use
  Company Number: US-BAYER-2013-000486

PATIENT
  Age: 43 Year
  Sex: Female
  Weight: 86.17 kg

DRUGS (11)
  1. OCELLA [Suspect]
  2. YAZ [Suspect]
  3. YASMIN [Suspect]
  4. GIANVI [Suspect]
  5. IBUPROFEN [Concomitant]
  6. MUCINEX [Concomitant]
  7. ZYRTEC [Concomitant]
  8. NASOCORT [Concomitant]
     Route: 045
  9. CEFDINIR [Concomitant]
     Dosage: 300 MG, 2 DAILY
     Route: 048
  10. IOPHEN-C NR [Concomitant]
  11. CEPHALEXIN [Concomitant]

REACTIONS (5)
  - Deep vein thrombosis [None]
  - Injury [None]
  - Pain [None]
  - Emotional distress [None]
  - Pain [None]
